FAERS Safety Report 7005536-5 (Version None)
Quarter: 2010Q3

REPORT INFORMATION
  Report Type: 
  Country: None (occurrence: None)
  Receive Date: 20100921
  Receipt Date: 20100914
  Transmission Date: 20110219
  Serious: Yes (Life-Threatening, Hospitalization, Other)
  Sender: FDA-Public Use
  Company Number: A0872963A

PATIENT
  Age: 35 Year
  Sex: Female
  Weight: 57.7 kg

DRUGS (6)
  1. ARZERRA [Suspect]
     Dosage: 2000MG WEEKLY
     Dates: start: 20100407
  2. LUNESTA [Concomitant]
  3. PRISTIQ [Concomitant]
  4. PROMETHAZINE [Concomitant]
  5. VITAMIN B-12 [Concomitant]
  6. XANAX [Concomitant]

REACTIONS (6)
  - ANAEMIA [None]
  - DISEASE PROGRESSION [None]
  - LYMPHADENOPATHY [None]
  - LYMPHOCYTE COUNT INCREASED [None]
  - PYREXIA [None]
  - WEIGHT DECREASED [None]
